FAERS Safety Report 9957368 (Version 1)
Quarter: 2014Q1

REPORT INFORMATION
  Report Type: Report from Study
  Country: US (occurrence: US)
  Receive Date: 20140304
  Receipt Date: 20140304
  Transmission Date: 20141002
  Serious: No
  Sender: FDA-Public Use
  Company Number: US-ABBVIE-13P-163-1098112-00

PATIENT
  Age: 74 Year
  Sex: Female

DRUGS (15)
  1. HUMIRA [Suspect]
     Indication: COLITIS ULCERATIVE
     Dosage: LOADING DOSE
     Route: 058
     Dates: start: 20130523, end: 20130523
  2. HUMIRA [Suspect]
     Route: 058
     Dates: start: 20130606
  3. HUMIRA [Suspect]
     Route: 058
  4. PROBIOTIC [Concomitant]
     Indication: PRODUCT USED FOR UNKNOWN INDICATION
     Dosage: DAILY
  5. LIBRAX [Concomitant]
     Indication: PRODUCT USED FOR UNKNOWN INDICATION
     Dosage: DAILY
  6. ASACOL [Concomitant]
     Indication: PRODUCT USED FOR UNKNOWN INDICATION
     Dosage: TWO 800 MG BID
  7. PROZAC [Concomitant]
     Indication: COLITIS ULCERATIVE
     Dosage: 40 MG DAILY
  8. OXYBUTYN [Concomitant]
     Indication: HYPERTONIC BLADDER
  9. UROXATRAL [Concomitant]
     Indication: BLADDER DILATATION
  10. SINGULAR [Concomitant]
     Indication: ASTHMA
     Dosage: AT BEDTIME
     Route: 055
  11. QVAR [Concomitant]
     Indication: ASTHMA
     Dosage: AT BEDTIME
     Route: 055
  12. ZOCOR [Concomitant]
     Indication: BLOOD CHOLESTEROL INCREASED
     Dosage: AT BEDTIME
  13. VITAMIN B-12 [Concomitant]
     Indication: PRODUCT USED FOR UNKNOWN INDICATION
     Dosage: MONTHLY
  14. ALLEGRA [Concomitant]
     Indication: HYPERSENSITIVITY
  15. FIORICET [Concomitant]
     Indication: PAIN

REACTIONS (3)
  - Fatigue [Recovered/Resolved]
  - Injection site pain [Recovered/Resolved]
  - Injection site pain [Recovered/Resolved]
